FAERS Safety Report 5069485-4 (Version None)
Quarter: 2006Q3

REPORT INFORMATION
  Report Type: 
  Country: None (occurrence: None)
  Receive Date: 20060714
  Receipt Date: 20060322
  Transmission Date: 20061208
  Serious: No
  Sender: FDA-Public Use
  Company Number: 2006SP001339

PATIENT
  Age: 72 Year
  Sex: Female
  Weight: 63.5036 kg

DRUGS (3)
  1. LUNESTA [Suspect]
     Indication: INSOMNIA
     Dosage: 3 MG;HS;ORAL
     Route: 048
     Dates: start: 20060321
  2. TYLENOL [Concomitant]
  3. SIMVASTATIN [Concomitant]

REACTIONS (2)
  - DRUG INEFFECTIVE [None]
  - INSOMNIA [None]
